FAERS Safety Report 4466804-4 (Version None)
Quarter: 2004Q4

REPORT INFORMATION
  Report Type: 
  Country: None (occurrence: None)
  Receive Date: 20041001
  Receipt Date: 20041001
  Transmission Date: 20050328
  Serious: No
  Sender: FDA-Public Use
  Company Number: None

PATIENT
  Age: 10 Year
  Sex: Female
  Weight: 25.3 kg

DRUGS (4)
  1. ELITEK [Suspect]
     Indication: ACUTE LYMPHOCYTIC LEUKAEMIA
     Dosage: 5 MG X1 INTRAVENOU
     Route: 042
     Dates: start: 20040623, end: 20040623
  2. ELITEK [Suspect]
     Indication: TUMOUR LYSIS SYNDROME
     Dosage: 5 MG X1 INTRAVENOU
     Route: 042
     Dates: start: 20040623, end: 20040623
  3. VINCRISTINE [Concomitant]
  4. PEGASPARGINASE [Concomitant]

REACTIONS (8)
  - BLOOD PRESSURE INCREASED [None]
  - BURNING SENSATION [None]
  - DYSPNOEA [None]
  - HEART RATE INCREASED [None]
  - INFUSION RELATED REACTION [None]
  - LETHARGY [None]
  - OXYGEN SATURATION DECREASED [None]
  - PRURITUS [None]
